FAERS Safety Report 6882342-3 (Version None)
Quarter: 2010Q3

REPORT INFORMATION
  Report Type: 
  Country: None (occurrence: None)
  Receive Date: 20100729
  Receipt Date: 20100225
  Transmission Date: 20110219
  Serious: No
  Sender: FDA-Public Use
  Company Number: US-MYLANLABS-2010S1003360

PATIENT
  Age: 55 Year
  Sex: Female
  Weight: 89.36 kg

DRUGS (4)
  1. LEVOTHYROXINE SODIUM [Suspect]
     Indication: HYPOTHYROIDISM
     Route: 048
     Dates: start: 20100218, end: 20100225
  2. MICROGESTIN 1.5/30 [Concomitant]
  3. DOXEPIN HCL [Concomitant]
  4. ALPRAZOLAM [Concomitant]

REACTIONS (6)
  - BLOOD PRESSURE INCREASED [None]
  - HEADACHE [None]
  - HEART RATE INCREASED [None]
  - PALPITATIONS [None]
  - REACTION TO DRUG EXCIPIENTS [None]
  - VERTIGO [None]
